FAERS Safety Report 22706229 (Version 2)
Quarter: 2024Q1

REPORT INFORMATION
  Report Type: Spontaneous
  Country: CA (occurrence: CA)
  Receive Date: 20230714
  Receipt Date: 20240125
  Transmission Date: 20240409
  Serious: Yes (Other)
  Sender: FDA-Public Use
  Company Number: CA-PFIZER INC-PV202200083056

PATIENT
  Age: 53 Year
  Sex: Female
  Weight: 65.3 kg

DRUGS (5)
  1. IBRANCE [Suspect]
     Active Substance: PALBOCICLIB
     Dosage: 100 MG, DAILY, 3 WEEKS/ 1 WEEK OFF
     Route: 048
  2. IBRANCE [Suspect]
     Active Substance: PALBOCICLIB
     Dosage: 100 MG, 1 TABLET 21 DAYS/7 DAYS OFF
     Dates: start: 20221024
  3. LETROZOLE [Concomitant]
     Active Substance: LETROZOLE
     Dosage: UNK
  4. TYLENOL [Concomitant]
     Active Substance: ACETAMINOPHEN
     Indication: Pain
     Dosage: UNK
  5. GOSERELIN [Concomitant]
     Active Substance: GOSERELIN
     Dosage: UNK
     Route: 058

REACTIONS (6)
  - Venous thrombosis [Unknown]
  - Hepatic cyst [Unknown]
  - Hepatic steatosis [Unknown]
  - Ovarian cyst [Unknown]
  - Weight increased [Unknown]
  - Neoplasm progression [Not Recovered/Not Resolved]
